FAERS Safety Report 4537070-6 (Version None)
Quarter: 2004Q4

REPORT INFORMATION
  Report Type: 
  Country: None (occurrence: None)
  Receive Date: 20041221
  Receipt Date: 20041215
  Transmission Date: 20050328
  Serious: Yes (Life-Threatening, Hospitalization)
  Sender: FDA-Public Use
  Company Number: 2004UW13634

PATIENT
  Age: 47 Year
  Sex: Male

DRUGS (5)
  1. CRESTOR [Suspect]
  2. EFFEXOR [Suspect]
     Indication: BIPOLAR DISORDER
  3. NARCOTIC PAIN MEDICATION [Suspect]
     Indication: NECK PAIN
  4. SEROQUEL [Concomitant]
  5. ZOCOR ^MERCK FROSST^ [Concomitant]

REACTIONS (27)
  - ACCIDENTAL OVERDOSE [None]
  - ACUTE RESPIRATORY FAILURE [None]
  - BLOOD PH DECREASED [None]
  - BLOOD SODIUM DECREASED [None]
  - BODY TEMPERATURE DECREASED [None]
  - CATHETER RELATED COMPLICATION [None]
  - COMA [None]
  - CONFUSIONAL STATE [None]
  - CORONARY ARTERY DISEASE [None]
  - DEHYDRATION [None]
  - ENCEPHALOPATHY [None]
  - HAEMOGLOBIN DECREASED [None]
  - HEAT EXHAUSTION [None]
  - HEAT STROKE [None]
  - HYPERKALAEMIA [None]
  - HYPERTENSION [None]
  - MENTAL STATUS CHANGES [None]
  - MUSCLE DISORDER [None]
  - MYOCARDIAL INFARCTION [None]
  - PNEUMONIA [None]
  - PO2 INCREASED [None]
  - RENAL FAILURE ACUTE [None]
  - RHABDOMYOLYSIS [None]
  - SYNCOPE [None]
  - URETHRAL INJURY [None]
  - VENTRICULAR HYPERTROPHY [None]
  - WHITE BLOOD CELL COUNT INCREASED [None]
